FAERS Safety Report 7009289-6 (Version None)
Quarter: 2010Q3

REPORT INFORMATION
  Report Type: 
  Country: None (occurrence: None)
  Receive Date: 20100921
  Receipt Date: 20100910
  Transmission Date: 20110219
  Serious: Yes (Hospitalization)
  Sender: FDA-Public Use
  Company Number: 2010US003695

PATIENT
  Age: 56 Year
  Sex: Male
  Weight: 77 kg

DRUGS (10)
  1. PROGRAF [Suspect]
     Indication: LIVER TRANSPLANT
     Dosage: 5 MG, BID, ORAL
     Route: 048
     Dates: start: 20030923
  2. RAPAMUNE [Concomitant]
  3. LYRICA [Concomitant]
  4. ASPIRIN [Concomitant]
  5. MULTIVITAMIN [Concomitant]
  6. ASCORBIC ACID [Concomitant]
  7. TRAZODONE HCL [Concomitant]
  8. NORTRIPTYLIN (NORTRIPTYLINE HYDROCHLORIDE) [Concomitant]
  9. DOXAZOSIN MESYLATE [Concomitant]
  10. IRON (IRON) [Concomitant]

REACTIONS (2)
  - TESTICULAR DISORDER [None]
  - URINARY TRACT INFECTION [None]
